FAERS Safety Report 9135049 (Version 2)
Quarter: 2013Q2

REPORT INFORMATION
  Report Type: Spontaneous
  Country: IT (occurrence: IT)
  Receive Date: 20130304
  Receipt Date: 20130412
  Transmission Date: 20140414
  Serious: Yes (Life-Threatening)
  Sender: FDA-Public Use
  Company Number: IT-009507513-1302ITA012756

PATIENT
  Age: 38 Year
  Sex: Female
  Weight: 57 kg

DRUGS (1)
  1. ORGALUTRAN [Suspect]
     Indication: ASSISTED FERTILISATION
     Dosage: 0.25MG/0.5ML, QD
     Route: 058
     Dates: start: 20130126, end: 20130127

REACTIONS (4)
  - Anaphylactic shock [Recovered/Resolved]
  - Dry mouth [Recovered/Resolved]
  - Laryngeal oedema [Recovered/Resolved]
  - Rash [Recovered/Resolved]
